FAERS Safety Report 6921517-1 (Version None)
Quarter: 2010Q3

REPORT INFORMATION
  Report Type: 
  Country: None (occurrence: None)
  Receive Date: 20100812
  Receipt Date: 20100802
  Transmission Date: 20110219
  Serious: Yes (Hospitalization)
  Sender: FDA-Public Use
  Company Number: US-JNJFOC-20100800491

PATIENT
  Age: 16 Year
  Sex: Male
  Weight: 45.36 kg

DRUGS (1)
  1. REMICADE [Suspect]
     Indication: COLITIS ULCERATIVE
     Route: 042

REACTIONS (4)
  - CHILLS [None]
  - DRUG EFFECT DECREASED [None]
  - HYPERHIDROSIS [None]
  - PYREXIA [None]
